FAERS Safety Report 24407218 (Version 1)
Quarter: 2024Q4

REPORT INFORMATION
  Report Type: Spontaneous
  Country: JP (occurrence: JP)
  Receive Date: 20241007
  Receipt Date: 20241007
  Transmission Date: 20250114
  Serious: Yes (Other)
  Sender: ALEXION PHARMACEUTICALS
  Company Number: JP-ASTRAZENECA-240104945_010520_P_1

PATIENT

DRUGS (4)
  1. FULVESTRANT [Suspect]
     Active Substance: FULVESTRANT
     Indication: Breast cancer
  2. FULVESTRANT [Suspect]
     Active Substance: FULVESTRANT
  3. TRUQAP [Suspect]
     Active Substance: CAPIVASERTIB
     Indication: Breast cancer
     Dosage: ADMINISTERED FOR 4 CONSECTIVE DAYS, AND THEN WITHDRAWN FOR 3 DAYS
  4. TRUQAP [Suspect]
     Active Substance: CAPIVASERTIB
     Dosage: DOSE UNKNOWN, ADMINISTERED FOR 4 CONSECTIVE DAYS, AND THEN WITHDRAWN FOR 3 DAYS

REACTIONS (2)
  - Colitis ischaemic [Recovering/Resolving]
  - Diarrhoea [Unknown]
